FAERS Safety Report 8113890-6 (Version None)
Quarter: 2012Q1

REPORT INFORMATION
  Report Type: 
  Country: None (occurrence: None)
  Receive Date: 20120203
  Receipt Date: 20120124
  Transmission Date: 20120608
  Serious: Yes (Hospitalization, Other)
  Sender: FDA-Public Use
  Company Number: CH-ROCHE-1028125

PATIENT
  Sex: Female
  Weight: 60 kg

DRUGS (3)
  1. CALCIUM SUPPLEMENT [Concomitant]
  2. IBANDRONATE SODIUM [Suspect]
     Indication: BREAST CANCER METASTATIC
     Route: 042
     Dates: start: 20050901, end: 20111201
  3. ARIMIDEX [Concomitant]
     Indication: BREAST CANCER METASTATIC
     Dates: start: 20050801

REACTIONS (1)
  - FEMUR FRACTURE [None]
